FAERS Safety Report 9170321 (Version 1)
Quarter: 2013Q1

REPORT INFORMATION
  Report Type: Spontaneous
  Country: US (occurrence: None)
  Receive Date: 20130312
  Receipt Date: 20130312
  Transmission Date: 20140127
  Serious: Yes (Life-Threatening)
  Sender: FDA-Public Use
  Company Number: TC12013A01224

PATIENT
  Age: 81 Year
  Sex: Female

DRUGS (7)
  1. NESINA [Suspect]
     Indication: TYPE 2 DIABETES MELLITUS
     Route: 048
     Dates: start: 20111220
  2. BLOPRESS [Concomitant]
  3. CILEXETIL [Concomitant]
  4. AMARYL [Concomitant]
  5. MEVALOTIN [Concomitant]
  6. ACINON [Concomitant]
  7. ALOSENN [Concomitant]

REACTIONS (1)
  - Oesophageal carcinoma [None]
